FAERS Safety Report 8230565-3 (Version None)
Quarter: 2012Q1

REPORT INFORMATION
  Report Type: 
  Country: None (occurrence: None)
  Receive Date: 20120323
  Receipt Date: 20120320
  Transmission Date: 20120608
  Serious: Yes (Hospitalization)
  Sender: FDA-Public Use
  Company Number: ES-BAYER-201010797GPV

PATIENT
  Age: 63 Year
  Sex: Male
  Weight: 75 kg

DRUGS (17)
  1. CAPECITABINE [Suspect]
     Dosage: 733 MG (DAILY DOSE), , INTRAVENOUS
     Route: 042
     Dates: start: 20091119, end: 20091119
  2. CARVEDILOL [Concomitant]
     Indication: HYPERTENSION
     Dosage: 12.5 MG (DAILY DOSE), ,
  3. CAPECITABINE [Suspect]
     Dosage: 733 MG (DAILY DOSE), , IV BOLUS
     Route: 040
     Dates: start: 20091217, end: 20091217
  4. CAPECITABINE [Suspect]
     Dosage: 155.70 MG (DAILY DOSE), , INTRAVENOUS
     Route: 042
     Dates: start: 20091203, end: 20091203
  5. DEXAMETHASONE [Concomitant]
     Indication: PREMEDICATION
     Dosage: 20 MG (DAILY DOSE), ,
     Dates: start: 20091119, end: 20091119
  6. CAPECITABINE [Suspect]
     Dosage: 733 MG (DAILY DOSE), , IV BOLUS
     Route: 040
     Dates: start: 20091119, end: 20091119
  7. TROPISETRON [Concomitant]
     Indication: PREMEDICATION
     Dosage: 5 MG (DAILY DOSE), ,
     Dates: start: 20091119, end: 20091119
  8. CAPECITABINE [Suspect]
     Dosage: 4397 MG (DAILY DOSE), , IV DRIP
     Route: 041
     Dates: start: 20091203, end: 20091205
  9. CAPECITABINE [Suspect]
     Dosage: 4397 MG (DAILY DOSE), , IV DRIP
     Route: 041
     Dates: start: 20091217, end: 20091219
  10. XALATAN [Concomitant]
     Indication: GLAUCOMA
     Dates: start: 20040101
  11. SORAFENIB (RAF KINASE INHIBITOR) [Suspect]
     Indication: COLORECTAL CANCER
     Route: 048
     Dates: start: 20091119
  12. CAPECITABINE [Suspect]
     Indication: COLORECTAL CANCER
     Dosage: 155.70 MG (DAILY DOSE), , INTRAVENOUS
     Route: 042
     Dates: start: 20091119, end: 20091119
  13. CAPECITABINE [Suspect]
     Dosage: 733 MG (DAILY DOSE), , INTRAVENOUS
     Route: 042
     Dates: start: 20091203, end: 20091203
  14. CAPECITABINE [Suspect]
     Dosage: 155.70 MG (DAILY DOSE), , INTRAVENOUS
     Route: 042
     Dates: start: 20091217, end: 20091217
  15. CAPECITABINE [Suspect]
     Dosage: 733 MG (DAILY DOSE), , IV BOLUS
     Route: 040
     Dates: start: 20091203, end: 20091203
  16. CAPECITABINE [Suspect]
     Dosage: 4397 MG (DAILY DOSE), , IV DRIP
     Route: 041
     Dates: start: 20091119, end: 20091121
  17. CAPECITABINE [Suspect]
     Dosage: 733 MG (DAILY DOSE), , INTRAVENOUS
     Route: 042
     Dates: start: 20091217, end: 20091217

REACTIONS (4)
  - DIARRHOEA [None]
  - MUCOSAL INFLAMMATION [None]
  - ENTERITIS [None]
  - NEUROTOXICITY [None]
